FAERS Safety Report 5934418-2 (Version None)
Quarter: 2008Q4

REPORT INFORMATION
  Report Type: 
  Country: None (occurrence: None)
  Receive Date: 20081027
  Receipt Date: 20081014
  Transmission Date: 20090506
  Serious: Yes (Other)
  Sender: FDA-Public Use
  Company Number: 2008AL011302

PATIENT
  Age: 66 Year
  Sex: Male

DRUGS (9)
  1. METFORMIN HYDROCHLORIDE EXTENDED-RELEASE TABLETS, 750 MG (PUREPAC) (ME [Suspect]
  2. DIAZEPAM TAB [Suspect]
  3. TEMAZEPAM [Suspect]
  4. AMLODIPINE BESYLATE [Suspect]
  5. ASPIRIN [Concomitant]
  6. NIZATIDINE [Concomitant]
  7. PAROXETINE HCL [Concomitant]
  8. CANDESARTAN CILEXETIL [Concomitant]
  9. INSULIN HUMAN [Concomitant]

REACTIONS (1)
  - DIABETES MELLITUS INADEQUATE CONTROL [None]
